FAERS Safety Report 4378144-2 (Version None)
Quarter: 2004Q2

REPORT INFORMATION
  Report Type: 
  Country: None (occurrence: None)
  Receive Date: 20040609
  Receipt Date: 20040525
  Transmission Date: 20050107
  Serious: Yes (Other)
  Sender: FDA-Public Use
  Company Number: EWC040539412

PATIENT
  Age: 47 Year
  Sex: Male

DRUGS (2)
  1. GEMCITABINE HYDROCHLORIDE-IV (GEMCITABINE) [Suspect]
     Indication: LUNG NEOPLASM MALIGNANT
     Dosage: 2 G/2 OTHER
     Dates: start: 20040202
  2. CISPLATIN [Concomitant]

REACTIONS (3)
  - CHEST PAIN [None]
  - CHOKING SENSATION [None]
  - TRACHEITIS [None]
